FAERS Safety Report 5216953-8 (Version None)
Quarter: 2007Q1

REPORT INFORMATION
  Report Type: 
  Country: None (occurrence: None)
  Receive Date: 20070124
  Receipt Date: 20070115
  Transmission Date: 20070707
  Serious: Yes (Other)
  Sender: FDA-Public Use
  Company Number: US-JNJFOC-20070103301

PATIENT
  Sex: Female

DRUGS (4)
  1. IBUPROFEN [Suspect]
     Indication: DYSMENORRHOEA
     Route: 048
  2. EXTRA STRENGTH TYLENOL [Suspect]
     Indication: DYSMENORRHOEA
     Route: 048
  3. MIDOL [Suspect]
     Indication: DYSMENORRHOEA
     Route: 048
  4. ANALGESIC [Suspect]
     Indication: DYSMENORRHOEA
     Route: 048

REACTIONS (2)
  - DYSPNOEA [None]
  - INTENTIONAL DRUG MISUSE [None]
